FAERS Safety Report 7579661-4 (Version None)
Quarter: 2011Q2

REPORT INFORMATION
  Report Type: 
  Country: None (occurrence: None)
  Receive Date: 20110629
  Receipt Date: 20110607
  Transmission Date: 20111010
  Serious: Yes (Other)
  Sender: FDA-Public Use
  Company Number: US-BAYER-201021130NA

PATIENT
  Age: 30 Year
  Sex: Female
  Weight: 82.993 kg

DRUGS (7)
  1. YAZ [Suspect]
     Indication: PRODUCT USED FOR UNKNOWN INDICATION
     Route: 048
     Dates: start: 20080401
  2. YASMIN [Suspect]
     Indication: POLYCYSTIC OVARIES
     Dosage: UNK UNK, UNK
     Route: 048
     Dates: start: 20070501, end: 20091201
  3. SPIRONOLACTONE [Concomitant]
     Dosage: UNK
     Dates: start: 20080901
  4. PHENERGAN HCL [Concomitant]
     Dosage: 25 UNK, UNK
     Route: 048
  5. DROSPIRENONE AND ETHINYL ESTRADIOL [Suspect]
     Indication: POLYCYSTIC OVARIES
     Dosage: UNK UNK, UNK
     Route: 048
     Dates: start: 20070501, end: 20091201
  6. HERBAL PREPARATION [Concomitant]
     Indication: ANTIOXIDANT THERAPY
  7. ZANTAC [Concomitant]
     Dosage: 300 MG, BID
     Route: 048

REACTIONS (11)
  - PULMONARY EMBOLISM [None]
  - HYPERPLASTIC CHOLECYSTOPATHY [None]
  - GALLBLADDER DISORDER [None]
  - CHOLECYSTITIS CHRONIC [None]
  - DEEP VEIN THROMBOSIS [None]
  - CHOLELITHIASIS [None]
  - CHOLESTEROSIS [None]
  - MENTAL DISORDER [None]
  - CEREBROVASCULAR ACCIDENT [None]
  - GALLBLADDER POLYP [None]
  - MYOCARDIAL INFARCTION [None]
